FAERS Safety Report 7715350-0 (Version None)
Quarter: 2011Q3

REPORT INFORMATION
  Report Type: 
  Country: None (occurrence: None)
  Receive Date: 20110829
  Receipt Date: 20110824
  Transmission Date: 20111222
  Serious: Yes (Death, Other)
  Sender: FDA-Public Use
  Company Number: VE-PFIZER INC-2011183442

PATIENT
  Age: 73 Year
  Sex: Male

DRUGS (4)
  1. GLUCOFAGE [Concomitant]
     Dosage: UNK
     Route: 048
  2. LIPITOR [Suspect]
     Dosage: 80 MG, 1X/DAY
     Route: 048
     Dates: start: 20080101, end: 20110301
  3. DIAMICRON [Concomitant]
     Dosage: UNK
     Route: 048
  4. ASPIRIN [Concomitant]
     Dosage: UNK
     Route: 048

REACTIONS (2)
  - INFARCTION [None]
  - ANGINA UNSTABLE [None]
